FAERS Safety Report 6603210-8 (Version None)
Quarter: 2010Q1

REPORT INFORMATION
  Report Type: 
  Country: None (occurrence: None)
  Receive Date: 20100226
  Receipt Date: 20100216
  Transmission Date: 20100710
  Serious: Yes (Other)
  Sender: FDA-Public Use
  Company Number: IE-PFIZER INC-2010000298

PATIENT
  Age: 13 Year
  Sex: Female
  Weight: 29.5 kg

DRUGS (1)
  1. GENOTROPIN [Suspect]
     Indication: BODY HEIGHT BELOW NORMAL
     Dosage: 1 MG, 1X/DAY
     Route: 058
     Dates: start: 20091001

REACTIONS (3)
  - FALL [None]
  - RADIUS FRACTURE [None]
  - TRAUMATIC FRACTURE [None]
